FAERS Safety Report 10170956 (Version 1)
Quarter: 2014Q2

REPORT INFORMATION
  Report Type: Spontaneous
  Country: US (occurrence: None)
  Receive Date: 20140513
  Receipt Date: 20140513
  Transmission Date: 20141212
  Serious: Yes (Death)
  Sender: FDA-Public Use
  Company Number: None

PATIENT
  Age: 66 Year
  Sex: Male

DRUGS (1)
  1. IVIG [Suspect]
     Indication: APLASTIC ANAEMIA
     Dates: start: 20121116, end: 20121116

REACTIONS (12)
  - Paraesthesia [None]
  - Chills [None]
  - Syncope [None]
  - Infusion related reaction [None]
  - Septic shock [None]
  - Hypoxia [None]
  - Cardiac ventricular thrombosis [None]
  - Cytokine storm [None]
  - Dilatation ventricular [None]
  - Ventricular hypokinesia [None]
  - Pulmonary embolism [None]
  - Acute myocardial infarction [None]
